FAERS Safety Report 18745700 (Version 2)
Quarter: 2021Q1

REPORT INFORMATION
  Report Type: Other
  Country: FR (occurrence: FR)
  Receive Date: 20210115
  Receipt Date: 20210128
  Transmission Date: 20210419
  Serious: Yes (Hospitalization)
  Sender: FDA-Public Use
  Company Number: FR-GE HEALTHCARE LIFE SCIENCES-2021CSU000117

PATIENT

DRUGS (14)
  1. OMNIPAQUE [Suspect]
     Active Substance: IOHEXOL
     Indication: DIAGNOSTIC PROCEDURE
     Dosage: 2 ML
     Route: 065
     Dates: start: 20200227, end: 20200227
  2. HYDROCORTANCYL [PREDNISOLONE ACETATE] [Suspect]
     Active Substance: PREDNISOLONE ACETATE
     Indication: CERVICOBRACHIAL SYNDROME
     Dosage: 1.8 ML
     Route: 065
     Dates: start: 20200227
  3. HYDROCORTANCYL [PREDNISOLONE ACETATE] [Suspect]
     Active Substance: PREDNISOLONE ACETATE
     Dosage: UNK
     Route: 065
     Dates: start: 20170227, end: 20170227
  4. CYMBALTA [Concomitant]
     Active Substance: DULOXETINE HYDROCHLORIDE
     Dosage: 60 MG
     Route: 065
  5. PARACETAMOL [Concomitant]
     Active Substance: ACETAMINOPHEN
     Dosage: UNK
     Dates: start: 20200606
  6. NEURONTIN [Concomitant]
     Active Substance: GABAPENTIN
     Dosage: 300 MG, TID (EVERY 8 HOURS)
     Route: 065
  7. NEURONTIN [Concomitant]
     Active Substance: GABAPENTIN
     Dosage: UNK
     Route: 065
     Dates: start: 20200606
  8. LAROXYL [Concomitant]
     Active Substance: AMITRIPTYLINE HYDROCHLORIDE
  9. DOLIPRANE [Concomitant]
     Active Substance: ACETAMINOPHEN
     Dosage: UNK
  10. RESITUNE [Concomitant]
     Active Substance: ASPIRIN
     Dosage: UNK
     Dates: start: 20200606
  11. NEURONTIN [Concomitant]
     Active Substance: GABAPENTIN
     Dosage: 1500 MG, QD
     Route: 065
  12. PANTOPRAZOLE [PANTOPRAZOLE SODIUM SESQUIHYDRATE] [Concomitant]
     Active Substance: PANTOPRAZOLE SODIUM
     Dosage: UNK
     Dates: start: 20200606
  13. OMNIPAQUE [Suspect]
     Active Substance: IOHEXOL
     Indication: PRODUCT USED FOR UNKNOWN INDICATION
  14. RESITUNE [Concomitant]
     Active Substance: ASPIRIN
     Dosage: 75 MG, QD
     Route: 065

REACTIONS (11)
  - Antibiotic therapy [Unknown]
  - Sinusitis [Unknown]
  - Skin disorder [Unknown]
  - Visual impairment [Unknown]
  - Muscle strength abnormal [Recovering/Resolving]
  - Vertigo [Unknown]
  - Paraesthesia [Recovering/Resolving]
  - Laboratory test abnormal [Recovering/Resolving]
  - Neuralgia [Recovering/Resolving]
  - Swollen tongue [Unknown]
  - Throat tightness [Unknown]

NARRATIVE: CASE EVENT DATE: 2020
